FAERS Safety Report 4909641-6 (Version None)
Quarter: 2006Q1

REPORT INFORMATION
  Report Type: 
  Country: None (occurrence: None)
  Receive Date: 20060209
  Receipt Date: 20060123
  Transmission Date: 20060701
  Serious: Yes (Other)
  Sender: FDA-Public Use
  Company Number: US200601004054

PATIENT
  Age: 63 Year
  Sex: Female

DRUGS (3)
  1. FORTEO [Suspect]
  2. FOLIC ACID [Concomitant]
  3. ESTRADIOL [Concomitant]

REACTIONS (3)
  - ARTHRALGIA [None]
  - JOINT LOCK [None]
  - SICKLE CELL ANAEMIA WITH CRISIS [None]
